FAERS Safety Report 20028021 (Version 1)
Quarter: 2021Q4

REPORT INFORMATION
  Report Type: Report from Study
  Country: US (occurrence: US)
  Receive Date: 20211103
  Receipt Date: 20211103
  Transmission Date: 20220303
  Serious: Yes (Death)
  Sender: FDA-Public Use
  Company Number: US-ABBVIE-20K-163-3677287-00

PATIENT
  Age: 76 Year
  Sex: Male
  Weight: 68.554 kg

DRUGS (5)
  1. VENCLEXTA [Suspect]
     Active Substance: VENETOCLAX
     Indication: Myeloproliferative neoplasm
     Route: 048
     Dates: start: 20201008, end: 20201201
  2. VENCLEXTA [Suspect]
     Active Substance: VENETOCLAX
     Route: 048
     Dates: start: 20201202
  3. DECITABINE [Concomitant]
     Active Substance: DECITABINE
     Indication: Myeloproliferative neoplasm
     Dosage: 35/100 MG
     Route: 048
  4. JADENU [Concomitant]
     Active Substance: DEFERASIROX
     Indication: Chelation therapy
     Dosage: YES
     Route: 048
  5. CEDAZURIDINE [Concomitant]
     Active Substance: CEDAZURIDINE
     Indication: Myeloproliferative neoplasm
     Dosage: 35/100 MG
     Route: 048

REACTIONS (2)
  - Death [Fatal]
  - Off label use [Unknown]

NARRATIVE: CASE EVENT DATE: 20201008
